FAERS Safety Report 18789615 (Version 2)
Quarter: 2021Q1

REPORT INFORMATION
  Report Type: Spontaneous
  Country: US (occurrence: US)
  Receive Date: 20210126
  Receipt Date: 20210217
  Transmission Date: 20210419
  Serious: No
  Sender: FDA-Public Use
  Company Number: US-AMNEAL PHARMACEUTICALS-2021-AMRX-00139

PATIENT
  Sex: Female
  Weight: 24.31 kg

DRUGS (10)
  1. VIGABATRIN. [Suspect]
     Active Substance: VIGABATRIN
     Dosage: 1250 MILLIGRAM, 2X/DAY  ON WEEK 3
     Route: 065
  2. VIGABATRIN. [Suspect]
     Active Substance: VIGABATRIN
     Dosage: 750 MILLIGRAM, 2X/DAY  ON DAY 8?10
     Route: 065
  3. VIGABATRIN. [Suspect]
     Active Substance: VIGABATRIN
     Dosage: 1000 MILLIGRAM, 2X/DAY  ON DAY 11?14
     Route: 065
  4. VIGABATRIN. [Suspect]
     Active Substance: VIGABATRIN
     Dosage: 1500 MILLIGRAM, 2X/DAY ON WEEK 4
     Route: 065
  5. SABRIL [Concomitant]
     Active Substance: VIGABATRIN
     Indication: PRODUCT USED FOR UNKNOWN INDICATION
     Dosage: UNK
     Route: 065
  6. VIGABATRIN. [Suspect]
     Active Substance: VIGABATRIN
     Indication: EPILEPSY
     Dosage: 250 MILLIGRAM, 2X/DAY  ON DAY 1?3
     Route: 065
  7. VIGABATRIN. [Suspect]
     Active Substance: VIGABATRIN
     Dosage: 500 MILLIGRAM, 2X/DAY  ON DAY 4?7
     Route: 065
  8. ONFI [Concomitant]
     Active Substance: CLOBAZAM
     Indication: PRODUCT USED FOR UNKNOWN INDICATION
     Dosage: UNK
     Route: 048
  9. FYCOMPA [Concomitant]
     Active Substance: PERAMPANEL
     Indication: PRODUCT USED FOR UNKNOWN INDICATION
     Dosage: UNK
     Route: 048
  10. VIMPAT [Concomitant]
     Active Substance: LACOSAMIDE
     Indication: PRODUCT USED FOR UNKNOWN INDICATION
     Dosage: UNK
     Route: 065

REACTIONS (1)
  - No adverse event [Unknown]
